FAERS Safety Report 12209236 (Version 2)
Quarter: 2016Q2

REPORT INFORMATION
  Report Type: Spontaneous
  Country: HR (occurrence: HR)
  Receive Date: 20160324
  Receipt Date: 20160405
  Transmission Date: 20160815
  Serious: Yes (Other)
  Sender: FDA-Public Use
  Company Number: PHHY2016HR034200

PATIENT

DRUGS (2)
  1. GILENYA [Suspect]
     Active Substance: FINGOLIMOD HYDROCHLORIDE
     Indication: MULTIPLE SCLEROSIS
     Dosage: UNK
     Route: 065
     Dates: start: 20141128, end: 20160128
  2. VITAMIN D [Concomitant]
     Active Substance: CHOLECALCIFEROL
     Indication: PRODUCT USED FOR UNKNOWN INDICATION
     Route: 065

REACTIONS (9)
  - Ophthalmoplegia [Unknown]
  - Binocular eye movement disorder [Unknown]
  - Paresis [Unknown]
  - Diplopia [Unknown]
  - Visual acuity reduced [Unknown]
  - Vision blurred [Unknown]
  - Myelitis transverse [Unknown]
  - Monoparesis [Unknown]
  - Gait disturbance [Unknown]
